FAERS Safety Report 6284965-1 (Version None)
Quarter: 2009Q3

REPORT INFORMATION
  Report Type: 
  Country: None (occurrence: None)
  Receive Date: 20090727
  Receipt Date: 20090715
  Transmission Date: 20100115
  Serious: Yes (Hospitalization)
  Sender: FDA-Public Use
  Company Number: JP-WYE-H10275409

PATIENT
  Sex: Male

DRUGS (2)
  1. ANCARON [Suspect]
     Indication: VENTRICULAR TACHYCARDIA
     Dosage: UNSPECIFIED
     Route: 048
     Dates: start: 20040101, end: 20080101
  2. ANCARON [Suspect]
     Indication: HYPERTROPHIC CARDIOMYOPATHY

REACTIONS (3)
  - ASTHMA [None]
  - CONDITION AGGRAVATED [None]
  - LIVER DISORDER [None]
